FAERS Safety Report 16461671 (Version 1)
Quarter: 2019Q2

REPORT INFORMATION
  Report Type: Spontaneous
  Country: GB (occurrence: GB)
  Receive Date: 20190621
  Receipt Date: 20190621
  Transmission Date: 20190711
  Serious: Yes (Other)
  Sender: FDA-Public Use
  Company Number: GB-TEVA-2019-GB-1066664

PATIENT
  Age: 51 Year
  Sex: Female
  Weight: 132 kg

DRUGS (8)
  1. HYDROMOL OINTMENT [Concomitant]
     Active Substance: PARAFFIN\WAX, EMULSIFYING
     Dosage: AND USED AS A SOAP.
     Dates: start: 20170206
  2. ZEROBASE [Concomitant]
     Active Substance: MINERAL OIL\PARAFFIN
     Indication: DRY SKIN
     Dosage: APPLY FREQUENTLY. AVOID NAKED FLAMES.
     Dates: start: 20170206, end: 20170313
  3. DERMOL [Concomitant]
     Active Substance: BENZALKONIUM CHLORIDE\CHLORHEXIDINE HYDROCHLORIDE\ISOPROPYL MYRISTATE\PARAFFIN
     Dosage: AVOID NAKED FLAMES.
     Dates: start: 20170227
  4. CETIRIZINE [Concomitant]
     Active Substance: CETIRIZINE HYDROCHLORIDE
     Dosage: ONE EVERY DAY
     Dates: start: 20170227
  5. HYDROCORTISONE. [Suspect]
     Active Substance: HYDROCORTISONE
     Indication: RASH
     Dates: start: 20170225
  6. MOMETASONE [Concomitant]
     Active Substance: MOMETASONE
     Dosage: APPLY ONCE EVERY DAY
     Dates: start: 20170317
  7. OLIVE OIL [Concomitant]
     Active Substance: OLIVE OIL
     Dosage: APPLY SEVERAL DROPS DAILY, FOLLOWED BY MASSAGE. USE TREATMENT FOR AT LEAST A FEW DAYS.
     Route: 001
     Dates: start: 20170206
  8. LOCORTEN-VIOFORM [Concomitant]
     Dosage: FOR 5 DAYS
     Route: 001
     Dates: start: 20170206

REACTIONS (1)
  - Rash [Recovering/Resolving]

NARRATIVE: CASE EVENT DATE: 20170227
